FAERS Safety Report 5840228-7 (Version None)
Quarter: 2008Q3

REPORT INFORMATION
  Report Type: 
  Country: None (occurrence: None)
  Receive Date: 20080807
  Receipt Date: 20080807
  Transmission Date: 20090109
  Serious: Yes (Hospitalization)
  Sender: FDA-Public Use
  Company Number: None

PATIENT
  Sex: Female
  Weight: 95 kg

DRUGS (2)
  1. CYCLOPHOSPHAMIDE [Suspect]
     Dosage: 1300 MG
  2. DOXORUBICIN HYDROCHLORIDE [Suspect]
     Dosage: 130 MG

REACTIONS (2)
  - INFECTED CYST [None]
  - PILONIDAL CYST [None]
